FAERS Safety Report 5602034-8 (Version None)
Quarter: 2008Q1

REPORT INFORMATION
  Report Type: 
  Country: None (occurrence: None)
  Receive Date: 20080122
  Receipt Date: 20080122
  Transmission Date: 20080703
  Serious: Yes (Other)
  Sender: FDA-Public Use
  Company Number: None

PATIENT
  Age: 75 Year
  Sex: Male
  Weight: 81.6475 kg

DRUGS (4)
  1. CLINDAMYCIN HCL [Suspect]
     Indication: INFECTION PROPHYLAXIS
     Dosage: 300MG Q6H PO
     Route: 048
     Dates: start: 20080114, end: 20080120
  2. CLINDAMYCIN HCL [Suspect]
     Indication: SURGERY
     Dosage: 300MG Q6H PO
     Route: 048
     Dates: start: 20080114, end: 20080120
  3. CLINDAMYCIN HCL [Suspect]
     Indication: INFECTION PROPHYLAXIS
     Dosage: 300MG Q6H PO
     Route: 048
     Dates: start: 20080120, end: 20080120
  4. CLINDAMYCIN HCL [Suspect]
     Indication: SURGERY
     Dosage: 300MG Q6H PO
     Route: 048
     Dates: start: 20080120, end: 20080120

REACTIONS (3)
  - DRUG INTERACTION [None]
  - INTERNATIONAL NORMALISED RATIO INCREASED [None]
  - POST PROCEDURAL HAEMORRHAGE [None]
